FAERS Safety Report 4284125-X (Version None)
Quarter: 2004Q1

REPORT INFORMATION
  Report Type: 
  Country: None (occurrence: None)
  Receive Date: 20040130
  Receipt Date: 20040126
  Transmission Date: 20041129
  Serious: Yes (Hospitalization)
  Sender: FDA-Public Use
  Company Number: 0400003EN0020P

PATIENT
  Age: 5 Year
  Sex: Male
  Weight: 24 kg

DRUGS (3)
  1. ONCASPAR [Suspect]
     Indication: NEOPLASM
     Dosage: 2100 U ONCE IM
     Dates: start: 20040126, end: 20040126
  2. METHOTREXATE [Concomitant]
  3. VINCRISTINE [Concomitant]

REACTIONS (3)
  - ANGIONEUROTIC OEDEMA [None]
  - HYPERSENSITIVITY [None]
  - NASAL CONGESTION [None]
